FAERS Safety Report 5841672-4 (Version None)
Quarter: 2008Q3

REPORT INFORMATION
  Report Type: 
  Country: None (occurrence: None)
  Receive Date: 20080811
  Receipt Date: 20080811
  Transmission Date: 20090109
  Serious: Yes (Other)
  Sender: FDA-Public Use
  Company Number: None

PATIENT
  Age: 44 Year
  Sex: Male
  Weight: 90.7194 kg

DRUGS (1)
  1. CLARITIN [Suspect]
     Indication: URTICARIA
     Dosage: 10 MG
     Dates: start: 20080804, end: 20080808

REACTIONS (2)
  - CONDITION AGGRAVATED [None]
  - DERMATITIS ALLERGIC [None]
